FAERS Safety Report 12548294 (Version 6)
Quarter: 2017Q2

REPORT INFORMATION
  Report Type: Spontaneous
  Country: GB (occurrence: GB)
  Receive Date: 20160712
  Receipt Date: 20170630
  Transmission Date: 20170830
  Serious: Yes (Death, Hospitalization, Other)
  Sender: FDA-Public Use
  Company Number: GB-ORION CORPORATION ORION PHARMA-ENTC2016-0370

PATIENT
  Age: 54 Year
  Sex: Male

DRUGS (20)
  1. PAXIL [Suspect]
     Active Substance: PAROXETINE HYDROCHLORIDE
     Indication: DEPRESSION
     Route: 048
     Dates: start: 200007, end: 20011217
  2. SEROXAT [Suspect]
     Active Substance: PAROXETINE HYDROCHLORIDE
     Route: 048
     Dates: start: 20011116
  3. APOTEX EUROPE PAROXETINE [Suspect]
     Active Substance: PAROXETINE
     Indication: DEPRESSION
     Route: 048
     Dates: start: 20111106
  4. FLUOXETINE [Concomitant]
     Active Substance: FLUOXETINE HYDROCHLORIDE
     Indication: DEPRESSION
     Route: 065
  5. PROPRANOLOL [Concomitant]
     Active Substance: PROPRANOLOL HYDROCHLORIDE
     Indication: ANXIETY
     Route: 065
     Dates: start: 200007
  6. SINEMET PLUS [Concomitant]
     Active Substance: CARBIDOPA\LEVODOPA
     Route: 065
  7. PAROXETINE HYDROCHLORIDE. [Suspect]
     Active Substance: PAROXETINE HYDROCHLORIDE
     Indication: DEPRESSION
     Route: 048
     Dates: start: 20011129
  8. SEROXAT [Suspect]
     Active Substance: PAROXETINE HYDROCHLORIDE
     Route: 048
     Dates: start: 20011129
  9. DIAZEPAM. [Concomitant]
     Active Substance: DIAZEPAM
     Indication: DEPRESSION
     Dosage: STRENGTH: 2 MG/5 MG
     Route: 065
     Dates: start: 20011101
  10. SINEMET PLUS [Concomitant]
     Active Substance: CARBIDOPA\LEVODOPA
     Route: 065
  11. DIAZEPAM. [Concomitant]
     Active Substance: DIAZEPAM
     Route: 065
     Dates: start: 20011129
  12. GAMANIL [Concomitant]
     Indication: DEPRESSION
     Route: 065
     Dates: start: 20011201, end: 200201
  13. TRAMADOL. [Concomitant]
     Active Substance: TRAMADOL
     Route: 065
  14. MIRTAZAPINE. [Suspect]
     Active Substance: MIRTAZAPINE
     Route: 065
     Dates: start: 200202
  15. SEROXAT [Suspect]
     Active Substance: PAROXETINE HYDROCHLORIDE
     Indication: DEPRESSION
     Route: 048
     Dates: start: 200007, end: 20011217
  16. PAXIL [Suspect]
     Active Substance: PAROXETINE HYDROCHLORIDE
     Route: 048
     Dates: start: 2001
  17. SEROXAT [Suspect]
     Active Substance: PAROXETINE HYDROCHLORIDE
     Route: 048
     Dates: start: 20011211, end: 20011217
  18. APOTEX EUROPE PAROXETINE [Suspect]
     Active Substance: PAROXETINE
     Route: 048
     Dates: start: 20011017, end: 20011211
  19. STALEVO [Suspect]
     Active Substance: CARBIDOPA\ENTACAPONE\LEVODOPA
     Indication: PARKINSON^S DISEASE
     Route: 065
  20. AMITRIPTYLINE [Concomitant]
     Active Substance: AMITRIPTYLINE
     Route: 065
     Dates: start: 200805

REACTIONS (25)
  - Decreased appetite [None]
  - Hallucination [None]
  - Intrusive thoughts [Unknown]
  - Weight decreased [None]
  - Palpitations [None]
  - Nightmare [None]
  - Aggression [None]
  - Depression [None]
  - Parkinson^s disease [Fatal]
  - Suicidal ideation [None]
  - Muscle spasms [None]
  - Hyperhidrosis [None]
  - Paraesthesia [None]
  - Restlessness [None]
  - Anxiety [None]
  - Skin cancer [None]
  - Trismus [None]
  - Agitation [None]
  - Panic attack [None]
  - Abnormal dreams [Unknown]
  - Nightmare [Unknown]
  - Withdrawal syndrome [None]
  - Tremor [None]
  - Sleep disorder [None]
  - Back pain [None]

NARRATIVE: CASE EVENT DATE: 20031006
